FAERS Safety Report 8518408-1 (Version None)
Quarter: 2012Q3

REPORT INFORMATION
  Report Type: 
  Country: None (occurrence: None)
  Receive Date: 20120718
  Receipt Date: 20120209
  Transmission Date: 20120928
  Serious: No
  Sender: FDA-Public Use
  Company Number: US-BRISTOL-MYERS SQUIBB COMPANY-16392524

PATIENT
  Age: 66 Year
  Sex: Male

DRUGS (2)
  1. COUMADIN [Suspect]
     Route: 065
  2. LOVENOX [Suspect]
     Dosage: BID UNTIL 27JAN12.ONCE A DAY:28JAN12- ONG.

REACTIONS (2)
  - INTERNATIONAL NORMALISED RATIO DECREASED [None]
  - HAEMORRHAGE [None]
